FAERS Safety Report 9527905 (Version 2)
Quarter: 2013Q4

REPORT INFORMATION
  Report Type: Spontaneous
  Country: US (occurrence: US)
  Receive Date: 20130917
  Receipt Date: 20131030
  Transmission Date: 20140711
  Serious: No
  Sender: FDA-Public Use
  Company Number: US-PFIZER INC-2013264407

PATIENT
  Age: 38 Year
  Sex: Female
  Weight: 90.7 kg

DRUGS (4)
  1. ADVIL [Suspect]
     Indication: HEADACHE
     Dosage: UNK, AS NEEDED
     Route: 048
     Dates: start: 2012
  2. ADVIL [Suspect]
     Indication: FIBROMYALGIA
  3. EFEXOR XR [Concomitant]
     Indication: DEPRESSION
     Dosage: 300 MG, DAILY
  4. LAMICTAL [Concomitant]
     Indication: DEPRESSION
     Dosage: 300 MG, DAILY

REACTIONS (5)
  - Poor quality drug administered [Unknown]
  - Oral discomfort [Recovered/Resolved]
  - Throat irritation [Recovered/Resolved]
  - Hepatic enzyme increased [Unknown]
  - Product physical issue [Unknown]
